FAERS Safety Report 8791987 (Version 1)
Quarter: 2012Q4

REPORT INFORMATION
  Report Type: 
  Country: DE (occurrence: FR)
  Receive Date: 20120918
  Receipt Date: 20120918
  Transmission Date: 20130627
  Serious: Yes (Hospitalization)
  Sender: FDA-Public Use
  Company Number: FR-BRISTOL-MYERS SQUIBB COMPANY-16955718

PATIENT
  Age: 66 Year
  Sex: Male

DRUGS (5)
  1. GLUCOPHAGE TABS 1000 MG [Suspect]
     Route: 048
     Dates: start: 20120705, end: 20120808
  2. TRIATEC [Concomitant]
     Dosage: Strength:2.5mg,tab
     Route: 048
  3. EFIENT [Concomitant]
     Dosage: tab
     Route: 048
  4. CRESTOR [Concomitant]
     Dosage: Strength:10mg tabs
     Route: 048
  5. KARDEGIC [Concomitant]
     Dosage: Strength: 75mg, powder for oral soln
     Route: 048
     Dates: end: 20120815

REACTIONS (1)
  - Pancreatitis [Recovered/Resolved]
